FAERS Safety Report 23794453 (Version 3)
Quarter: 2024Q2

REPORT INFORMATION
  Report Type: Spontaneous
  Country: DE (occurrence: DE)
  Receive Date: 20240429
  Receipt Date: 20240617
  Transmission Date: 20240716
  Serious: Yes (Hospitalization, Other)
  Sender: FDA-Public Use
  Company Number: DE-BRISTOL-MYERS SQUIBB COMPANY-2024-025321

PATIENT
  Age: 71 Year
  Sex: Male
  Weight: 92.6 kg

DRUGS (3)
  1. ELIQUIS [Suspect]
     Active Substance: APIXABAN
     Indication: Atrial fibrillation
     Route: 048
     Dates: start: 2015
  2. ELIQUIS [Suspect]
     Active Substance: APIXABAN
     Indication: Cerebrovascular accident prophylaxis
     Route: 048
     Dates: start: 2019, end: 20240114
  3. ELIQUIS [Suspect]
     Active Substance: APIXABAN
     Indication: Embolism arterial

REACTIONS (6)
  - Cerebral infarction [Recovered/Resolved]
  - Syncope [Unknown]
  - Treatment failure [Unknown]
  - Pancreatitis chronic [Unknown]
  - Gastroenteritis [Unknown]
  - Prostate cancer [Unknown]

NARRATIVE: CASE EVENT DATE: 20220201
